FAERS Safety Report 9956713 (Version 1)
Quarter: 2014Q1

REPORT INFORMATION
  Report Type: Report from Study
  Country: US (occurrence: US)
  Receive Date: 20140304
  Receipt Date: 20140304
  Transmission Date: 20141002
  Serious: No
  Sender: FDA-Public Use
  Company Number: US-ABBVIE-13P-163-1098672-00

PATIENT
  Age: 51 Year
  Sex: Female

DRUGS (8)
  1. HUMIRA [Suspect]
     Indication: CROHN^S DISEASE
     Dates: start: 20130314
  2. B12 [Concomitant]
     Indication: VITAMIN SUPPLEMENTATION
  3. ZANTAC [Concomitant]
     Indication: OESOPHAGEAL ULCER
  4. CYMBALTA [Concomitant]
     Indication: NEUROPATHY PERIPHERAL
     Dosage: 60MG DAILY
  5. CYMBALTA [Concomitant]
     Indication: DEPRESSION
  6. LEVOTHYROXINE [Concomitant]
     Indication: HYPOTHYROIDISM
     Dosage: 50MCQ DAILY
  7. WELCHOL [Concomitant]
     Indication: DIARRHOEA
     Dosage: 625MG 2-3 TIMES PER DAY
  8. ZYRTEC [Concomitant]
     Indication: PRODUCT USED FOR UNKNOWN INDICATION
     Dosage: 1 DAILY AS NEEDED DURING ALLERGY SEASON

REACTIONS (2)
  - Injection site pain [Recovered/Resolved]
  - Injection site mass [Recovered/Resolved]
